FAERS Safety Report 9107624 (Version 1)
Quarter: 2013Q1

REPORT INFORMATION
  Report Type: Spontaneous
  Country: US (occurrence: US)
  Receive Date: 20130221
  Receipt Date: 20130221
  Transmission Date: 20140127
  Serious: Yes (Hospitalization, Other)
  Sender: FDA-Public Use
  Company Number: US-ROCHE-1192836

PATIENT
  Age: 19 Year
  Sex: Male

DRUGS (9)
  1. CLONAZEPAM [Suspect]
     Indication: PRODUCT USED FOR UNKNOWN INDICATION
     Route: 065
     Dates: end: 201210
  2. HUMIRA [Suspect]
     Indication: CROHN^S DISEASE
     Route: 065
     Dates: start: 201108
  3. ZOLOFT [Suspect]
     Indication: PRODUCT USED FOR UNKNOWN INDICATION
     Route: 065
     Dates: end: 201210
  4. SEROQUEL [Suspect]
     Indication: PRODUCT USED FOR UNKNOWN INDICATION
     Route: 065
     Dates: end: 201210
  5. TRAZODONE [Suspect]
     Indication: PRODUCT USED FOR UNKNOWN INDICATION
     Route: 065
     Dates: end: 201210
  6. NEURONTIN [Concomitant]
     Dosage: 600 MG AT NIGHT
     Route: 065
  7. LAMICTAL [Concomitant]
     Route: 065
  8. LATUDA [Concomitant]
     Route: 065
  9. TEMAZEPAM [Concomitant]
     Dosage: AT BEDTIME
     Route: 065

REACTIONS (4)
  - Drug ineffective [Unknown]
  - Injection site reaction [Unknown]
  - Injection site erythema [Unknown]
  - Injection site swelling [Unknown]
